FAERS Safety Report 6866129-3 (Version None)
Quarter: 2010Q3

REPORT INFORMATION
  Report Type: 
  Country: None (occurrence: None)
  Receive Date: 20100722
  Receipt Date: 20100714
  Transmission Date: 20110219
  Serious: Yes (Disabling)
  Sender: FDA-Public Use
  Company Number: JP-ASTRAZENECA-2010SE28921

PATIENT
  Age: 77 Year
  Sex: Female
  Weight: 43 kg

DRUGS (13)
  1. CRESTOR [Suspect]
     Indication: TYPE IIA HYPERLIPIDAEMIA
     Route: 048
     Dates: start: 20090502
  2. WARFARIN SODIUM [Interacting]
     Route: 048
  3. WARFARIN SODIUM [Interacting]
     Route: 048
  4. NORVASC [Concomitant]
     Route: 048
  5. ALDACTONE [Concomitant]
     Route: 048
  6. ASPIRIN [Concomitant]
     Route: 048
  7. GASTER [Concomitant]
     Route: 048
  8. MUCOSOLVAN L [Concomitant]
     Route: 048
  9. SOLANAX [Concomitant]
     Route: 048
  10. ZETIA [Concomitant]
     Route: 048
  11. TIZANIDINE HCL [Concomitant]
     Route: 048
  12. HYALEIN [Concomitant]
     Dosage: DOSAGE UNKNOWN, FREQUENCY THREE TIMES A DAY
     Route: 047
  13. NIFLAN [Concomitant]
     Dosage: AS NEEDED
     Route: 047

REACTIONS (3)
  - DRUG INTERACTION [None]
  - HAEMORRHAGE SUBCUTANEOUS [None]
  - MOUTH HAEMORRHAGE [None]
